FAERS Safety Report 6662433-2 (Version None)
Quarter: 2010Q1

REPORT INFORMATION
  Report Type: 
  Country: None (occurrence: None)
  Receive Date: 20100331
  Receipt Date: 20100319
  Transmission Date: 20100710
  Serious: Yes (Congenital Anomaly)
  Sender: FDA-Public Use
  Company Number: IR-WATSON-2010-03932

PATIENT

DRUGS (1)
  1. FLUOXETINE [Suspect]
     Indication: DRUG USE FOR UNKNOWN INDICATION
     Dosage: UNK
     Route: 064

REACTIONS (1)
  - ATRIAL SEPTAL DEFECT [None]
